FAERS Safety Report 6638058-1 (Version None)
Quarter: 2010Q1

REPORT INFORMATION
  Report Type: 
  Country: None (occurrence: None)
  Receive Date: 20100301
  Receipt Date: 20090131
  Transmission Date: 20100710
  Serious: Yes (Life-Threatening, Hospitalization, Other)
  Sender: FDA-Public Use
  Company Number: RB-9066-2009

PATIENT
  Age: 12 Month
  Sex: Male

DRUGS (1)
  1. SUBOXONE [Suspect]
     Indication: DRUG USE FOR UNKNOWN INDICATION
     Dosage: UNKNOWN AMOUNT INGESTED
     Dates: start: 20090129, end: 20090129

REACTIONS (3)
  - ACCIDENTAL EXPOSURE [None]
  - OVERDOSE [None]
  - RESPIRATORY ARREST [None]
